FAERS Safety Report 23514170 (Version 1)
Quarter: 2024Q1

REPORT INFORMATION
  Report Type: Spontaneous
  Country: US (occurrence: US)
  Receive Date: 20240212
  Receipt Date: 20240212
  Transmission Date: 20240409
  Serious: No
  Sender: FDA-Public Use
  Company Number: US-PFIZER INC-202400036110

PATIENT
  Age: 81 Year
  Sex: Female
  Weight: 60.78 kg

DRUGS (2)
  1. IBRANCE [Suspect]
     Active Substance: PALBOCICLIB
     Indication: Breast cancer
     Dosage: THREE WEEKS AND ONE WEEK OFF
  2. METOPROLOL [Concomitant]
     Active Substance: METOPROLOL
     Indication: Hypertension
     Dosage: 50 MG, 1X/DAY
     Dates: start: 2012

REACTIONS (2)
  - Full blood count abnormal [Recovered/Resolved]
  - Off label use [Unknown]
